FAERS Safety Report 16832401 (Version 1)
Quarter: 2019Q3

REPORT INFORMATION
  Report Type: Spontaneous
  Country: US (occurrence: US)
  Receive Date: 20190730
  Receipt Date: 20190730
  Transmission Date: 20191005
  Serious: Yes (Hospitalization)
  Sender: FDA-Public Use
  Company Number: None

PATIENT
  Age: 59 Year
  Sex: Female
  Weight: 91 kg

DRUGS (1)
  1. VANCOMYCIN INJECTION [Suspect]
     Active Substance: VANCOMYCIN
     Indication: ARTHRITIS BACTERIAL
     Route: 042
     Dates: start: 20190530, end: 20190606

REACTIONS (5)
  - Tachycardia [None]
  - Post procedural complication [None]
  - Respiratory failure [None]
  - Drug reaction with eosinophilia and systemic symptoms [None]
  - Tachypnoea [None]

NARRATIVE: CASE EVENT DATE: 20190610
